FAERS Safety Report 13482265 (Version 2)
Quarter: 2017Q3

REPORT INFORMATION
  Report Type: Report from Study
  Country: US (occurrence: US)
  Receive Date: 20170424
  Receipt Date: 20170728
  Transmission Date: 20171127
  Serious: No
  Sender: FDA-Public Use
  Company Number: US-AMGEN-USASL2017052067

PATIENT
  Age: 73 Year
  Sex: Female

DRUGS (3)
  1. PREVACID [Concomitant]
     Active Substance: LANSOPRAZOLE
     Dosage: UNK
  2. REPATHA [Suspect]
     Active Substance: EVOLOCUMAB
     Indication: TYPE IIA HYPERLIPIDAEMIA
     Dosage: 140 MG, Q2WK
     Route: 065
  3. REPATHA [Suspect]
     Active Substance: EVOLOCUMAB
     Indication: BLOOD CHOLESTEROL INCREASED

REACTIONS (10)
  - Dyspepsia [Unknown]
  - Injection site pain [Unknown]
  - Rhinorrhoea [Unknown]
  - Cough [Unknown]
  - Diarrhoea [Recovered/Resolved]
  - Wrong technique in product usage process [Unknown]
  - Accidental exposure to product [Unknown]
  - Drug dose omission [Unknown]
  - Weight increased [Unknown]
  - Malaise [Unknown]

NARRATIVE: CASE EVENT DATE: 201701
